FAERS Safety Report 6582850-9 (Version None)
Quarter: 2010Q1

REPORT INFORMATION
  Report Type: 
  Country: None (occurrence: None)
  Receive Date: 20100212
  Receipt Date: 20100212
  Transmission Date: 20100710
  Serious: Yes (Hospitalization)
  Sender: FDA-Public Use
  Company Number: None

PATIENT
  Age: 39 Year
  Sex: Female
  Weight: 72.4 kg

DRUGS (2)
  1. IRON SUCROSE [Suspect]
     Indication: DRUG HYPERSENSITIVITY
     Dosage: 500 MG ONCE IV
     Route: 042
     Dates: start: 20091204, end: 20091205
  2. IRON SUCROSE [Suspect]
     Indication: SERUM SICKNESS
     Dosage: 500 MG ONCE IV
     Route: 042
     Dates: start: 20091204, end: 20091205

REACTIONS (9)
  - ABDOMINAL PAIN [None]
  - DIZZINESS [None]
  - ERYTHEMA [None]
  - HYPOTENSION [None]
  - JOINT STIFFNESS [None]
  - MYALGIA [None]
  - OEDEMA PERIPHERAL [None]
  - PRURITUS [None]
  - RASH MACULO-PAPULAR [None]
